FAERS Safety Report 12534650 (Version 1)
Quarter: 2016Q3

REPORT INFORMATION
  Report Type: Spontaneous
  Country: GR (occurrence: GR)
  Receive Date: 20160706
  Receipt Date: 20160706
  Transmission Date: 20161109
  Serious: Yes (Hospitalization)
  Sender: FDA-Public Use
  Company Number: GR-ALLERGAN-1661853US

PATIENT
  Age: 45 Year
  Sex: Female

DRUGS (2)
  1. MESALAZINE UNK [Suspect]
     Active Substance: MESALAMINE
     Indication: COLITIS ULCERATIVE
     Dosage: 500 MG, TID
  2. PREDNISOLON [Suspect]
     Active Substance: PREDNISOLONE
     Indication: MENINGORADICULITIS
     Dosage: 5 MG, UNK
     Route: 048

REACTIONS (4)
  - Respiratory failure [None]
  - Sinus tachycardia [None]
  - Lung disorder [Recovered/Resolved]
  - Alveolitis [Recovered/Resolved]
